FAERS Safety Report 7513431-8 (Version None)
Quarter: 2011Q2

REPORT INFORMATION
  Report Type: 
  Country: None (occurrence: None)
  Receive Date: 20110531
  Receipt Date: 20101227
  Transmission Date: 20111010
  Serious: Yes (Hospitalization, Other)
  Sender: FDA-Public Use
  Company Number: US-BAYER-201020268NA

PATIENT
  Sex: Female
  Weight: 95 kg

DRUGS (12)
  1. METRONIDAZOLE [Concomitant]
     Dosage: 500 MG, BID
  2. PHENTERMINE [Concomitant]
     Dosage: UNK
     Dates: start: 20060101, end: 20060203
  3. YASMIN [Suspect]
     Indication: CONTRACEPTION
     Route: 048
     Dates: start: 20030201, end: 20090115
  4. NAPROXEN [Concomitant]
     Indication: MUSCLE SPASMS
     Dosage: UNK UNK, PRN
     Dates: start: 20020101
  5. ANAPROX [Concomitant]
     Dosage: UNK UNK, PRN
  6. YASMIN [Suspect]
     Indication: PREMENSTRUAL SYNDROME
  7. DROSPIRENONE AND ETHINYL ESTRADIOL [Suspect]
     Indication: CONTRACEPTION
  8. DROSPIRENONE AND ETHINYL ESTRADIOL [Suspect]
     Indication: PREMENSTRUAL SYNDROME
  9. DROSPIRENONE AND ETHINYL ESTRADIOL [Suspect]
     Indication: MENSTRUATION IRREGULAR
  10. YASMIN [Suspect]
     Indication: MENSTRUATION IRREGULAR
  11. TERAZOL 7 [Concomitant]
  12. CIPROFLOXACIN [Concomitant]
     Dosage: 500 MG, BID

REACTIONS (7)
  - CHOLECYSTITIS CHRONIC [None]
  - CHOLELITHIASIS [None]
  - PANCREATITIS [None]
  - GALLBLADDER DISORDER [None]
  - DIABETES MELLITUS [None]
  - TYPE 2 DIABETES MELLITUS [None]
  - GALLBLADDER PAIN [None]
